FAERS Safety Report 13564276 (Version 5)
Quarter: 2017Q4

REPORT INFORMATION
  Report Type: Spontaneous
  Country: JP (occurrence: JP)
  Receive Date: 20170519
  Receipt Date: 20171228
  Transmission Date: 20180320
  Serious: Yes (Death, Other)
  Sender: FDA-Public Use
  Company Number: JP-009507513-1705JPN001387J

PATIENT
  Age: 68 Year
  Sex: Male
  Weight: 65 kg

DRUGS (3)
  1. ABRAXANE [Suspect]
     Active Substance: PACLITAXEL
     Indication: SQUAMOUS CELL CARCINOMA OF LUNG
     Dosage: 170 MG, UNK
     Route: 041
     Dates: start: 20170417, end: 20170417
  2. KEYTRUDA [Suspect]
     Active Substance: PEMBROLIZUMAB
     Indication: SQUAMOUS CELL CARCINOMA OF LUNG
     Dosage: 200 MG, UNK
     Route: 041
     Dates: start: 20170512, end: 20170512
  3. CARBOPLATIN. [Suspect]
     Active Substance: CARBOPLATIN
     Indication: SQUAMOUS CELL CARCINOMA OF LUNG
     Dosage: 500 MG, UNK
     Route: 041
     Dates: start: 20170417, end: 20170417

REACTIONS (6)
  - Haemoptysis [Fatal]
  - Shock haemorrhagic [Fatal]
  - Asphyxia [Fatal]
  - Arterial perforation [Unknown]
  - Lung infiltration [Fatal]
  - Neoplasm progression [Fatal]

NARRATIVE: CASE EVENT DATE: 20170515
